FAERS Safety Report 15431296 (Version 2)
Quarter: 2018Q4

REPORT INFORMATION
  Report Type: Spontaneous
  Country: US (occurrence: US)
  Receive Date: 20180926
  Receipt Date: 20181019
  Transmission Date: 20190204
  Serious: No
  Sender: FDA-Public Use
  Company Number: US-SUNOVION-2018SUN003640

PATIENT
  Sex: Female

DRUGS (16)
  1. ASPIRIN 81 [Concomitant]
     Active Substance: ASPIRIN
     Dosage: 81 MG CHEWABLE, QD
     Route: 048
  2. CLOPIDOGREL BISULFATE. [Concomitant]
     Active Substance: CLOPIDOGREL BISULFATE
     Dosage: 75 MG, HS
     Route: 048
  3. TESSALON [Concomitant]
     Active Substance: BENZONATATE
     Dosage: 200 MG, TID, PRN
     Route: 048
  4. CARVEDILOL ABZ [Concomitant]
     Dosage: 3.125 MG, QD, W/BREAKFAST
     Route: 048
  5. MUCINEX ALLERGY [Concomitant]
     Active Substance: FEXOFENADINE HYDROCHLORIDE
     Dosage: 600 MG, QID
     Route: 048
  6. ANORO ELLIPTA [Concomitant]
     Active Substance: UMECLIDINIUM BROMIDE\VILANTEROL TRIFENATATE
     Dosage: 62.5 MCG - 25 MCG/INH, QD 3 REFILLS
     Route: 055
  7. PERFOROMIST [Concomitant]
     Active Substance: FORMOTEROL FUMARATE DIHYDRATE
     Dosage: 20MCG/2ML, BID, 11 REFILLS
     Route: 055
  8. PREDNISONE. [Concomitant]
     Active Substance: PREDNISONE
     Dosage: 10 MG, UNK
     Route: 048
  9. PROAIR HFA [Concomitant]
     Active Substance: ALBUTEROL SULFATE
     Dosage: 90 MCG/INH, QID, 4 REFILLS
     Route: 055
  10. ARNUITY ELLIPTA [Concomitant]
     Active Substance: FLUTICASONE FUROATE
     Dosage: 100 ?G, QD, 3 REFILLS
     Route: 055
  11. MONTELUKAST SODIUM. [Concomitant]
     Active Substance: MONTELUKAST SODIUM
     Dosage: 10 MG, QD
     Route: 048
  12. FAMOTIDINE ACID REDUCER [Concomitant]
     Dosage: 20 MG, QD
     Route: 048
  13. ALPRAZOLAM. [Concomitant]
     Active Substance: ALPRAZOLAM
     Dosage: 0.5 MG, TID, PRN
     Route: 048
  14. LONHALA MAGNAIR [Suspect]
     Active Substance: GLYCOPYRROLATE
     Indication: CHRONIC OBSTRUCTIVE PULMONARY DISEASE
     Dosage: 25 MCG/ML, UNK
     Route: 055
     Dates: start: 20180723
  15. BUDESONIDE. [Concomitant]
     Active Substance: BUDESONIDE
     Dosage: 0.5MG/2ML, BID, 11 REFILLS
     Route: 055
  16. TEMAZEPAM STAT RX [Concomitant]
     Dosage: 7.5 MG, HS
     Route: 048

REACTIONS (1)
  - Feeling abnormal [Unknown]
